FAERS Safety Report 16857887 (Version 3)
Quarter: 2021Q1

REPORT INFORMATION
  Report Type: Spontaneous
  Country: US (occurrence: US)
  Receive Date: 20190926
  Receipt Date: 20210219
  Transmission Date: 20210419
  Serious: Yes (Other)
  Sender: FDA-Public Use
  Company Number: US-GILEAD-2019-0429342

PATIENT
  Age: 48 Year
  Sex: Male
  Weight: 86.17 kg

DRUGS (32)
  1. REMERON [Concomitant]
     Active Substance: MIRTAZAPINE
  2. VENTOLIN [Concomitant]
     Active Substance: ALBUTEROL SULFATE
  3. TENORMIN [Concomitant]
     Active Substance: ATENOLOL
  4. HYDROMORPHONE [Concomitant]
     Active Substance: HYDROMORPHONE
  5. FENTANYL. [Concomitant]
     Active Substance: FENTANYL
  6. METOPROLOL. [Concomitant]
     Active Substance: METOPROLOL
  7. CLARITIN [Concomitant]
     Active Substance: LORATADINE
  8. XENICAL [Concomitant]
     Active Substance: ORLISTAT
  9. NORMODYNE [Concomitant]
     Active Substance: LABETALOL HYDROCHLORIDE
  10. TIVICAY [Concomitant]
     Active Substance: DOLUTEGRAVIR SODIUM
  11. STRIBILD [Suspect]
     Active Substance: COBICISTAT\ELVITEGRAVIR\EMTRICITABINE\TENOFOVIR DISOPROXIL FUMARATE
     Dosage: UNK
     Route: 048
     Dates: start: 20150910, end: 20160426
  12. ATENOLOL/CHLORTHALIDONE [Concomitant]
     Active Substance: ATENOLOL\CHLORTHALIDONE
  13. BECLOMETHASONE DIPROPIONATE MONOHYDRATE [Concomitant]
     Active Substance: BECLOMETHASONE DIPROPIONATE MONOHYDRATE
  14. PREZCOBIX [Concomitant]
     Active Substance: COBICISTAT\DARUNAVIR ETHANOLATE
  15. POLYETHYLENE GLYCOL ELECTROLYTES [Concomitant]
  16. OCEAN SALINE NASAL SPRAY [Concomitant]
     Active Substance: SODIUM CHLORIDE
  17. ASTELIN [Concomitant]
     Active Substance: AZELASTINE HYDROCHLORIDE
  18. ATRIPLA [Suspect]
     Active Substance: EFAVIRENZ\EMTRICITABINE\TENOFOVIR DISOPROXIL FUMARATE
     Indication: HIV INFECTION
     Dosage: UNK
     Route: 048
     Dates: start: 2008, end: 20150910
  19. STRIBILD [Suspect]
     Active Substance: COBICISTAT\ELVITEGRAVIR\EMTRICITABINE\TENOFOVIR DISOPROXIL FUMARATE
     Indication: HIV INFECTION
     Dosage: UNK
     Route: 048
     Dates: start: 2015, end: 2018
  20. CATAPRES [Concomitant]
     Active Substance: CLONIDINE HYDROCHLORIDE
  21. ZYRTEC [Concomitant]
     Active Substance: CETIRIZINE HYDROCHLORIDE
  22. ALDARA [Concomitant]
     Active Substance: IMIQUIMOD
  23. GENVOYA [Concomitant]
     Active Substance: COBICISTAT\ELVITEGRAVIR\EMTRICITABINE\TENOFOVIR ALAFENAMIDE FUMARATE
     Indication: HIV INFECTION
     Route: 048
  24. DELTASONE [Concomitant]
     Active Substance: PREDNISONE
  25. ONDANSETRON [Concomitant]
     Active Substance: ONDANSETRON
  26. ATRIPLA [Suspect]
     Active Substance: EFAVIRENZ\EMTRICITABINE\TENOFOVIR DISOPROXIL FUMARATE
     Dosage: UNK
     Route: 048
     Dates: start: 20120416, end: 20150910
  27. AZELASTINE. [Concomitant]
     Active Substance: AZELASTINE HYDROCHLORIDE
  28. BECONASE AQ [Concomitant]
     Active Substance: BECLOMETHASONE DIPROPIONATE MONOHYDRATE
  29. ZANTAC [Concomitant]
     Active Substance: RANITIDINE HYDROCHLORIDE
  30. FLUTICASONE. [Concomitant]
     Active Substance: FLUTICASONE
  31. STRIBILD [Suspect]
     Active Substance: COBICISTAT\ELVITEGRAVIR\EMTRICITABINE\TENOFOVIR DISOPROXIL FUMARATE
     Dosage: UNK
     Route: 048
     Dates: start: 20150910, end: 201605
  32. ALBUTEROL HFA [Concomitant]
     Active Substance: ALBUTEROL SULFATE

REACTIONS (13)
  - Emotional distress [Not Recovered/Not Resolved]
  - Anxiety [Not Recovered/Not Resolved]
  - Fatigue [Not Recovered/Not Resolved]
  - Anhedonia [Not Recovered/Not Resolved]
  - Blood pressure fluctuation [Not Recovered/Not Resolved]
  - Asthenia [Not Recovered/Not Resolved]
  - Quality of life decreased [Not Recovered/Not Resolved]
  - Decreased activity [Not Recovered/Not Resolved]
  - Pollakiuria [Not Recovered/Not Resolved]
  - Chronic kidney disease [Not Recovered/Not Resolved]
  - Medical diet [Not Recovered/Not Resolved]
  - Pain [Not Recovered/Not Resolved]
  - Economic problem [Not Recovered/Not Resolved]

NARRATIVE: CASE EVENT DATE: 201804
